FAERS Safety Report 6792357-1 (Version None)
Quarter: 2010Q2

REPORT INFORMATION
  Report Type: 
  Country: None (occurrence: None)
  Receive Date: 20100624
  Receipt Date: 20081020
  Transmission Date: 20101027
  Serious: No
  Sender: FDA-Public Use
  Company Number: US-PFIZER INC-2008064963

PATIENT
  Sex: Female
  Weight: 68.04 kg

DRUGS (2)
  1. LINCOCIN [Suspect]
     Indication: NASOPHARYNGITIS
     Route: 042
     Dates: start: 20080207
  2. LINCOCIN [Suspect]
     Indication: BRONCHITIS

REACTIONS (2)
  - DIZZINESS [None]
  - THINKING ABNORMAL [None]
